FAERS Safety Report 8154123 (Version 8)
Quarter: 2015Q1

REPORT INFORMATION
  Report Type: Spontaneous
  Country: CA (occurrence: CA)
  Receive Date: 20110923
  Receipt Date: 20150210
  Transmission Date: 20150721
  Serious: Yes (Hospitalization, Other)
  Sender: FDA-Public Use
  Company Number: CA-ROCHE-GNE324612

PATIENT
  Age: 18 Year
  Sex: Male

DRUGS (7)
  1. VENTOLIN [Concomitant]
     Active Substance: ALBUTEROL SULFATE
  2. COLY-MYCIN [Concomitant]
  3. XOLAIR [Suspect]
     Active Substance: OMALIZUMAB
     Indication: ASTHMA
     Route: 058
     Dates: start: 20091013
  4. PREDNISONE. [Concomitant]
     Active Substance: PREDNISONE
  5. XOLAIR [Suspect]
     Active Substance: OMALIZUMAB
     Route: 058
     Dates: start: 20150119
  6. PULMICORT TURBUHALER [Concomitant]
     Active Substance: BUDESONIDE
  7. LACTAID (CANADA) [Concomitant]

REACTIONS (5)
  - Constipation [Unknown]
  - Intestinal obstruction [Unknown]
  - Cough [Recovering/Resolving]
  - Lung infection [Recovered/Resolved]
  - Abdominal pain [Unknown]

NARRATIVE: CASE EVENT DATE: 20110905
